FAERS Safety Report 5763436-2 (Version None)
Quarter: 2008Q2

REPORT INFORMATION
  Report Type: 
  Country: None (occurrence: None)
  Receive Date: 20080528
  Receipt Date: 20080428
  Transmission Date: 20081010
  Serious: No
  Sender: FDA-Public Use
  Company Number: PHEH2008US03698

PATIENT
  Age: 67 Year
  Sex: Female
  Weight: 70.7 kg

DRUGS (15)
  1. TASIGNA [Suspect]
     Indication: CHRONIC MYELOID LEUKAEMIA
     Dosage: 200 MG, BID, ORAL
     Route: 048
     Dates: start: 20080327, end: 20080401
  2. HYZAAR [Concomitant]
  3. TENORMIN [Concomitant]
  4. ATENOLOL [Concomitant]
  5. GLUCOPHAGE [Concomitant]
  6. SIMVASTATIN [Concomitant]
  7. AVANDIA [Concomitant]
  8. DIABETA [Concomitant]
  9. ZOLOFT [Concomitant]
  10. PLETAL [Concomitant]
  11. VITAMIN B (NO INGREDIENTS/SUBSTANCES) [Concomitant]
  12. ASPIRIN [Concomitant]
  13. VITAMIN D [Concomitant]
  14. FISH OIL (FISH OIL) [Concomitant]
  15. BENADRYL [Concomitant]

REACTIONS (6)
  - ALOPECIA [None]
  - ANOREXIA [None]
  - NAUSEA [None]
  - PAIN IN EXTREMITY [None]
  - PYREXIA [None]
  - VISION BLURRED [None]
